FAERS Safety Report 6328820-7 (Version None)
Quarter: 2009Q3

REPORT INFORMATION
  Report Type: 
  Country: None (occurrence: None)
  Receive Date: 20090824
  Receipt Date: 20090824
  Transmission Date: 20100115
  Serious: No
  Sender: FDA-Public Use
  Company Number: None

PATIENT
  Age: 30 Year
  Sex: Male
  Weight: 74.8435 kg

DRUGS (1)
  1. FINASTERIDE [Suspect]
     Indication: ANDROGENETIC ALOPECIA
     Dosage: 1 MG ONCE DAILY PO
     Route: 048
     Dates: start: 20080615, end: 20090707

REACTIONS (3)
  - ERECTILE DYSFUNCTION [None]
  - FIBROSIS [None]
  - PENIS DISORDER [None]
